FAERS Safety Report 6527693-7 (Version None)
Quarter: 2010Q1

REPORT INFORMATION
  Report Type: 
  Country: None (occurrence: None)
  Receive Date: 20100106
  Receipt Date: 20091223
  Transmission Date: 20100710
  Serious: Yes (Other)
  Sender: FDA-Public Use
  Company Number: US-RANBAXY-2009RR-30189

PATIENT
  Age: 55 Year
  Sex: Female

DRUGS (5)
  1. ACICLOVIR [Suspect]
     Route: 042
  2. FOSCARNET [Suspect]
     Dosage: UNK
     Route: 042
  3. TACROLIMUS [Concomitant]
     Dosage: UNK
     Route: 042
  4. PREDNISOLONE [Concomitant]
     Indication: GRAFT VERSUS HOST DISEASE
  5. MYCOPHENOLATE MOFETIL [Concomitant]

REACTIONS (4)
  - DRUG RESISTANCE [None]
  - HYPONATRAEMIA [None]
  - NEUTROPENIA [None]
  - RENAL IMPAIRMENT [None]
